FAERS Safety Report 6271436-1 (Version None)
Quarter: 2009Q3

REPORT INFORMATION
  Report Type: 
  Country: None (occurrence: None)
  Receive Date: 20090717
  Receipt Date: 20090708
  Transmission Date: 20100115
  Serious: Yes (Death, Hospitalization)
  Sender: FDA-Public Use
  Company Number: SE-JNJFOC-20061202493

PATIENT
  Sex: Male

DRUGS (10)
  1. REMICADE [Suspect]
     Indication: RHEUMATOID ARTHRITIS
     Route: 042
  2. LANSOPRAZOLE [Concomitant]
  3. METHOTREXATE [Concomitant]
  4. FOLACIN [Concomitant]
  5. PREDNISOLONE [Concomitant]
  6. DONOBID [Concomitant]
  7. LASIX [Concomitant]
  8. GLYBURIDE [Concomitant]
  9. ASPIRIN [Concomitant]
  10. CALCICHEW D3 [Concomitant]

REACTIONS (3)
  - DEATH [None]
  - DEEP VEIN THROMBOSIS [None]
  - NON-SMALL CELL LUNG CANCER STAGE IV [None]
